FAERS Safety Report 17010489 (Version 1)
Quarter: 2019Q4

REPORT INFORMATION
  Report Type: Spontaneous
  Country: FR (occurrence: FR)
  Receive Date: 20191108
  Receipt Date: 20191108
  Transmission Date: 20200122
  Serious: Yes (Other)
  Sender: FDA-Public Use
  Company Number: FR-US-PROVELL PHARMACEUTICALS LLC-9017762

PATIENT
  Age: 40 Year
  Sex: Female

DRUGS (1)
  1. LEVOTHYROX NF [Suspect]
     Active Substance: LEVOTHYROXINE SODIUM
     Indication: PRODUCT USED FOR UNKNOWN INDICATION
     Dates: start: 201703, end: 201709

REACTIONS (44)
  - Back pain [Unknown]
  - Psychiatric symptom [Unknown]
  - Dyspnoea [Unknown]
  - Blood thyroid stimulating hormone increased [Unknown]
  - Odynophagia [Unknown]
  - Cough [Unknown]
  - Tremor [Unknown]
  - Haemorrhagic disorder [Unknown]
  - Social avoidant behaviour [Unknown]
  - Dry skin [Unknown]
  - Self esteem decreased [Unknown]
  - Affect lability [Unknown]
  - Lymphocyte count increased [Unknown]
  - Monocyte count increased [Unknown]
  - Malaise [Unknown]
  - Weight increased [Unknown]
  - Anhedonia [Unknown]
  - Creatinine renal clearance decreased [Unknown]
  - White blood cell count increased [Unknown]
  - Neutrophil count increased [Unknown]
  - Alopecia [Unknown]
  - Amnesia [Unknown]
  - Blood pressure decreased [Unknown]
  - Blood cholesterol increased [Unknown]
  - Diarrhoea [Unknown]
  - Libido decreased [Unknown]
  - Blood triglycerides increased [Unknown]
  - Epicondylitis [Unknown]
  - Tendonitis [Unknown]
  - Vomiting [Unknown]
  - Irritability [Unknown]
  - Sleep disorder [Unknown]
  - Depression [Unknown]
  - Ear pain [Unknown]
  - Mood swings [Unknown]
  - Mental fatigue [Unknown]
  - Persistent depressive disorder [Unknown]
  - Emotional disorder [Unknown]
  - Fatigue [Unknown]
  - Anxiety [Unknown]
  - Dyspareunia [Unknown]
  - Mean cell volume decreased [Unknown]
  - Red blood cell sedimentation rate increased [Unknown]
  - Headache [Unknown]

NARRATIVE: CASE EVENT DATE: 201703
